FAERS Safety Report 25984182 (Version 1)
Quarter: 2025Q4

REPORT INFORMATION
  Report Type: Spontaneous
  Country: EU (occurrence: EU)
  Receive Date: 20251031
  Receipt Date: 20251031
  Transmission Date: 20260118
  Serious: Yes (Hospitalization, Other)
  Sender: Atnahs Healthcare
  Company Number: EU-ATNAHS-ATNAHS20230802408

PATIENT

DRUGS (4)
  1. VALIUM [Suspect]
     Active Substance: DIAZEPAM
     Indication: Drug withdrawal syndrome
     Dosage: 30 MG, DAILY
     Route: 065
  2. PREGABALIN [Suspect]
     Active Substance: PREGABALIN
     Indication: Drug withdrawal syndrome
     Dosage: 12600 MG, DAILY
     Route: 048
     Dates: start: 2019
  3. CLONIDINE [Concomitant]
     Active Substance: CLONIDINE
     Indication: Withdrawal syndrome
     Dosage: FREQUENCY : 3 FREQUENCY TIME : 1 FREQUENCY TIME UNIT : DAYS
  4. BUSPIRONE [Concomitant]
     Active Substance: BUSPIRONE HYDROCHLORIDE
     Indication: Withdrawal syndrome
     Dosage: UNK

REACTIONS (12)
  - Drug use disorder [Unknown]
  - Psychomotor retardation [Unknown]
  - Pain [Unknown]
  - Hyperhidrosis [Unknown]
  - Anxiety [Unknown]
  - Drug abuse [Unknown]
  - Nausea [Unknown]
  - Tachycardia [Unknown]
  - Drug dependence [Unknown]
  - Withdrawal syndrome [Unknown]
  - Off label use [Unknown]
  - Intentional overdose [Unknown]

NARRATIVE: CASE EVENT DATE: 20190101
